FAERS Safety Report 17447837 (Version 8)
Quarter: 2020Q2

REPORT INFORMATION
  Report Type: Report from Study
  Country: None (occurrence: ES)
  Receive Date: 20200221
  Receipt Date: 20200408
  Transmission Date: 20200713
  Serious: Yes (Hospitalization, Other)
  Sender: FDA-Public Use
  Company Number: ES-ABBVIE-20K-144-3266482-00

PATIENT
  Age: 72 Year
  Sex: Female
  Weight: 110 kg

DRUGS (17)
  1. PECTOX FORTE [Concomitant]
     Indication: PRODUCT USED FOR UNKNOWN INDICATION
  2. DUODOPA [Suspect]
     Active Substance: CARBIDOPA\LEVODOPA
     Dosage: 20MG/5 MG,CONTINUOUS DOSE 3.6ML/HOUR
     Route: 050
     Dates: start: 202002, end: 20200222
  3. OMEPRAZOLE. [Concomitant]
     Active Substance: OMEPRAZOLE
     Indication: PROPHYLAXIS
     Route: 048
  4. SINEMET [Concomitant]
     Active Substance: CARBIDOPA\LEVODOPA
     Indication: PARKINSON^S DISEASE
     Dosage: SINEMET RETARD
     Route: 048
  5. DUODOPA [Suspect]
     Active Substance: CARBIDOPA\LEVODOPA
     Dosage: INCREASE CONTINUOUS, INCREASE EXTRA DOSE
     Route: 050
     Dates: start: 202003
  6. SINEMET PLUS [Concomitant]
     Active Substance: CARBIDOPA\LEVODOPA
     Indication: PARKINSON^S DISEASE
     Dosage: 2-2-2-2
     Route: 048
     Dates: start: 202002, end: 202002
  7. DUODOPA [Suspect]
     Active Substance: CARBIDOPA\LEVODOPA
     Dosage: CONTINUOUS DOSE 4.1ML/H
     Route: 050
     Dates: start: 20200219, end: 202002
  8. BALZAC [Concomitant]
     Indication: PRODUCT USED FOR UNKNOWN INDICATION
     Route: 048
  9. MIRAPEXIN [Suspect]
     Active Substance: PRAMIPEXOLE
     Indication: PARKINSON^S DISEASE
     Route: 048
  10. ELONTRIL [Concomitant]
     Active Substance: BUPROPION HYDROCHLORIDE
     Indication: PRODUCT USED FOR UNKNOWN INDICATION
     Route: 048
  11. LEVODOPA [Concomitant]
     Active Substance: LEVODOPA
     Indication: PARKINSON^S DISEASE
     Route: 048
     Dates: start: 202002
  12. DEPRAX [Concomitant]
     Indication: PRODUCT USED FOR UNKNOWN INDICATION
     Route: 048
     Dates: end: 202002
  13. SINEMET [Concomitant]
     Active Substance: CARBIDOPA\LEVODOPA
     Indication: PARKINSON^S DISEASE
     Dosage: 250/200?1-1-1-1
     Route: 048
     Dates: start: 202002, end: 20200312
  14. FUROSEMIDE. [Concomitant]
     Active Substance: FUROSEMIDE
     Indication: PRODUCT USED FOR UNKNOWN INDICATION
  15. DUODOPA [Suspect]
     Active Substance: CARBIDOPA\LEVODOPA
     Indication: PARKINSON^S DISEASE
     Route: 050
     Dates: start: 20191219, end: 202002
  16. DUODOPA [Suspect]
     Active Substance: CARBIDOPA\LEVODOPA
     Dosage: ALL DOSES ARE LOWERED
     Route: 050
     Dates: start: 20200312, end: 202003
  17. MOTILIUM [Concomitant]
     Active Substance: DOMPERIDONE
     Indication: PRODUCT USED FOR UNKNOWN INDICATION
     Route: 048
     Dates: start: 202002

REACTIONS (28)
  - Hypoventilation [Unknown]
  - Renal mass [Unknown]
  - Device kink [Recovered/Resolved]
  - Dizziness [Not Recovered/Not Resolved]
  - Loss of personal independence in daily activities [Unknown]
  - Exostosis [Unknown]
  - Dysgeusia [Not Recovered/Not Resolved]
  - Vomiting [Recovered/Resolved]
  - Hiatus hernia [Unknown]
  - Productive cough [Unknown]
  - Discomfort [Recovered/Resolved]
  - Nausea [Recovered/Resolved]
  - Dyskinesia [Not Recovered/Not Resolved]
  - Pneumonia [Recovered/Resolved]
  - Drug intolerance [Unknown]
  - Hypotension [Not Recovered/Not Resolved]
  - Constipation [Recovering/Resolving]
  - Renal failure [Recovered/Resolved]
  - Adverse food reaction [Unknown]
  - Renal cyst [Unknown]
  - Abdominal wall wound [Unknown]
  - Decreased appetite [Recovering/Resolving]
  - Vomiting [Recovered/Resolved]
  - Therapeutic product effect decreased [Unknown]
  - Rib fracture [Unknown]
  - On and off phenomenon [Not Recovered/Not Resolved]
  - Renal disorder [Unknown]
  - Respiratory tract infection [Recovering/Resolving]

NARRATIVE: CASE EVENT DATE: 2020
